FAERS Safety Report 19994038 (Version 3)
Quarter: 2022Q3

REPORT INFORMATION
  Report Type: Spontaneous
  Country: US (occurrence: US)
  Receive Date: 20211025
  Receipt Date: 20220627
  Transmission Date: 20221027
  Serious: No
  Sender: FDA-Public Use
  Company Number: US-NOVARTISTESTPH-NVSC2021US238900

PATIENT
  Sex: Female

DRUGS (1)
  1. KESIMPTA [Suspect]
     Active Substance: OFATUMUMAB
     Indication: Multiple sclerosis
     Dosage: 20 MG
     Route: 065

REACTIONS (7)
  - Bladder dysfunction [Unknown]
  - Rhinorrhoea [Unknown]
  - Pruritus [Recovered/Resolved]
  - Headache [Unknown]
  - Stress [Unknown]
  - COVID-19 [Unknown]
  - Nasopharyngitis [Unknown]
